FAERS Safety Report 23152850 (Version 1)
Quarter: 2023Q4

REPORT INFORMATION
  Report Type: Other
  Country: US (occurrence: None)
  Receive Date: 20231107
  Receipt Date: 20231107
  Transmission Date: 20240110
  Serious: Yes (Hospitalization)
  Sender: FDA-Public Use
  Company Number: US-ROCHE-3451487

PATIENT
  Age: 72 Year
  Sex: Male

DRUGS (2)
  1. ZELBORAF [Suspect]
     Active Substance: VEMURAFENIB
     Indication: Dihydropyrimidine dehydrogenase deficiency
     Dosage: TAKE 2 TABLET(S) BY MOUTH EVERY 12 HOURS
     Route: 048
  2. ZELBORAF [Suspect]
     Active Substance: VEMURAFENIB
     Indication: Langerhans^ cell histiocytosis

REACTIONS (5)
  - Hypertension [Unknown]
  - Atrial fibrillation [Unknown]
  - Eating disorder [Unknown]
  - Dysphagia [Unknown]
  - Off label use [Unknown]
